FAERS Safety Report 4749261-X (Version None)
Quarter: 2005Q3

REPORT INFORMATION
  Report Type: 
  Country: None (occurrence: None)
  Receive Date: 20050817
  Receipt Date: 20050809
  Transmission Date: 20060218
  Serious: Yes (Death)
  Sender: FDA-Public Use
  Company Number: 2005FR-00222

PATIENT
  Sex: Male

DRUGS (11)
  1. CIPROFLOXACIN [Suspect]
     Dosage: 250MG, TWICE DAILY
  2. SPIRIVA [Concomitant]
  3. COMBIVENT [Concomitant]
  4. SERETIDE [Concomitant]
  5. SODIUM CHLORIDE [Concomitant]
  6. PREDNISOLONE [Concomitant]
  7. AMLODIPINE [Concomitant]
  8. TRIMETHOPRIM [Concomitant]
  9. FUROSEMIDE [Concomitant]
  10. INSTILLAGEL [Concomitant]
  11. CLOTRIMAZOLE [Concomitant]

REACTIONS (4)
  - CARDIAC FAILURE CONGESTIVE [None]
  - CHRONIC OBSTRUCTIVE PULMONARY DISEASE [None]
  - CYSTITIS [None]
  - DIZZINESS [None]
